FAERS Safety Report 7123834-1 (Version None)
Quarter: 2010Q4

REPORT INFORMATION
  Report Type: 
  Country: None (occurrence: None)
  Receive Date: 20101125
  Receipt Date: 20101122
  Transmission Date: 20110411
  Serious: Yes (Death, Other)
  Sender: FDA-Public Use
  Company Number: PHHY2010CA75365

PATIENT
  Sex: Male

DRUGS (1)
  1. SANDOSTATIN [Suspect]
     Indication: CARCINOID TUMOUR
     Dosage: UNKNOWN
     Route: 058
     Dates: start: 20101029

REACTIONS (7)
  - ABDOMINAL DISTENSION [None]
  - ASCITES [None]
  - DEATH [None]
  - DYSPNOEA [None]
  - MALIGNANT NEOPLASM PROGRESSION [None]
  - NAUSEA [None]
  - OEDEMA [None]
